FAERS Safety Report 5497356-8 (Version None)
Quarter: 2007Q4

REPORT INFORMATION
  Report Type: 
  Country: None (occurrence: None)
  Receive Date: 20071023
  Receipt Date: 20071010
  Transmission Date: 20080405
  Serious: Yes (Other)
  Sender: FDA-Public Use
  Company Number: DSU-2007-00728

PATIENT
  Sex: Female

DRUGS (11)
  1. OLMESARTAN MEDOXOMIL [Suspect]
     Indication: HYPERTENSION
     Dosage: 40 MG (40 MG, BID), PER ORAL
     Route: 048
     Dates: start: 20050101
  2. OMEPRAZOL (OMEPRAZOLE) (OMEPRAZOLE) [Concomitant]
  3. BROMAZEPAM (BROMAZEPAM) (BROMAZEPAM) [Concomitant]
  4. ZANIDIP (LERCANIDIPINE HYDROCHLORIDE) (LERCANIDIPINE HYDROCHLORIDE) [Concomitant]
  5. DIOSMIN (DIOSMIN) (DIOSMIN) [Concomitant]
  6. ATENOLOL [Concomitant]
  7. APRESOLINA (HYDRALAZINE HYDROCHLORIDE) [Concomitant]
  8. SODIUM ALENDRONATE (ALENDRONATE SODIUM) [Concomitant]
  9. ARELIX (PIRETANIDE SODIUM) [Concomitant]
  10. COLTRAX (THIOCOLCHICOSIDE) [Concomitant]
  11. CONDROFLEX (GLUCOSAMINE, CHONDROITIN SULFATE) [Concomitant]

REACTIONS (3)
  - CHONDROPATHY [None]
  - OSTEOPENIA [None]
  - OSTEOPOROSIS [None]
